FAERS Safety Report 5020995-5 (Version None)
Quarter: 2006Q2

REPORT INFORMATION
  Report Type: 
  Country: None (occurrence: None)
  Receive Date: 20060602
  Receipt Date: 20060523
  Transmission Date: 20061013
  Serious: Yes (Other)
  Sender: FDA-Public Use
  Company Number: 200612184BCC

PATIENT
  Age: 58 Year
  Sex: Male
  Weight: 79.3795 kg

DRUGS (7)
  1. ALEVE [Suspect]
     Indication: ARTHRALGIA
     Dosage: 440 MG, BID; ORAL
     Route: 048
     Dates: start: 20041201
  2. EXTRA STRENGTH BAYER BACK + BODY PAIN [Suspect]
     Indication: BACK PAIN
     Dosage: 1000 MG, PRN; ORAL, 2000 MG, TOTAL DAILY; ORAL
     Route: 048
  3. EXTRA STRENGTH BAYER BACK + BODY PAIN [Suspect]
     Indication: SCIATICA
     Dosage: 1000 MG, PRN; ORAL, 2000 MG, TOTAL DAILY; ORAL
     Route: 048
  4. EXTRA STRENGTH BAYER BACK + BODY PAIN [Suspect]
     Indication: BACK PAIN
     Dosage: 1000 MG, PRN; ORAL, 2000 MG, TOTAL DAILY; ORAL
     Route: 048
     Dates: start: 20060520
  5. EXTRA STRENGTH BAYER BACK + BODY PAIN [Suspect]
     Indication: SCIATICA
     Dosage: 1000 MG, PRN; ORAL, 2000 MG, TOTAL DAILY; ORAL
     Route: 048
     Dates: start: 20060520
  6. LOW DOSE BAYER ASPIRIN (ACETYLSALICYLIC ACID) [Suspect]
     Indication: CARDIAC DISORDER
     Dosage: 81 MG, QD; ORAL
     Route: 048
     Dates: start: 20010101
  7. LOW DOSE BAYER ASPIRIN (ACETYLSALICYLIC ACID) [Suspect]
     Indication: PROPHYLAXIS
     Dosage: 81 MG, QD; ORAL
     Route: 048
     Dates: start: 20010101

REACTIONS (1)
  - BLOOD PRESSURE INCREASED [None]
